FAERS Safety Report 11689507 (Version 1)
Quarter: 2015Q4

REPORT INFORMATION
  Report Type: Spontaneous
  Country: US (occurrence: None)
  Receive Date: 20151030
  Receipt Date: 20151030
  Transmission Date: 20160304
  Serious: Yes (Hospitalization)
  Sender: FDA-Public Use
  Company Number: None

PATIENT
  Age: 69 Year
  Sex: Male
  Weight: 75.39 kg

DRUGS (16)
  1. ZYRTEC [Concomitant]
     Active Substance: CETIRIZINE HYDROCHLORIDE
  2. LACTULOSE. [Concomitant]
     Active Substance: LACTULOSE
  3. CORTISPORI [Concomitant]
  4. MULTIVITAMIN [Concomitant]
     Active Substance: VITAMINS
  5. HARVONI [Suspect]
     Active Substance: LEDIPASVIR\SOFOSBUVIR
     Indication: HEPATITIS C
     Dosage: 90-400 MG
     Route: 048
     Dates: start: 20150319, end: 20150428
  6. LEVAQUIN [Concomitant]
     Active Substance: LEVOFLOXACIN
  7. FLONASE [Concomitant]
     Active Substance: FLUTICASONE PROPIONATE
  8. NADOLOL. [Concomitant]
     Active Substance: NADOLOL
  9. RIBAVIRIN 1000 MG [Suspect]
     Active Substance: RIBAVIRIN
     Indication: HEPATITIS C
     Route: 048
     Dates: start: 20150319, end: 20150417
  10. OFLOXACIN. [Concomitant]
     Active Substance: OFLOXACIN
  11. SPIRONOLACTONE. [Concomitant]
     Active Substance: SPIRONOLACTONE
  12. PROBIOTIC [Concomitant]
     Active Substance: PROBIOTICS NOS
  13. XIFAXAN [Concomitant]
     Active Substance: RIFAXIMIN
  14. CIPROFLOXACIN. [Concomitant]
     Active Substance: CIPROFLOXACIN
  15. OXYCODONE [Concomitant]
     Active Substance: OXYCODONE
  16. LASIX [Concomitant]
     Active Substance: FUROSEMIDE

REACTIONS (3)
  - Delusion [None]
  - Mental status changes [None]
  - Abnormal behaviour [None]

NARRATIVE: CASE EVENT DATE: 20150502
